FAERS Safety Report 8488319-9 (Version None)
Quarter: 2012Q3

REPORT INFORMATION
  Report Type: 
  Country: None (occurrence: None)
  Receive Date: 20120705
  Receipt Date: 20120703
  Transmission Date: 20120928
  Serious: Yes (Hospitalization, Other)
  Sender: FDA-Public Use
  Company Number: PHFR2012GB003458

PATIENT
  Sex: Female

DRUGS (4)
  1. CLOZARIL [Suspect]
     Indication: SCHIZOPHRENIA
     Route: 048
     Dates: start: 20060516
  2. SIMVASTATIN [Concomitant]
     Dosage: 40 MG, DAILY
     Route: 048
  3. CLOZARIL [Suspect]
     Dosage: 500 MG, DAILY
     Route: 048
  4. ESOMEPRAZOLE [Concomitant]
     Dosage: 20 MG, DAILY
     Route: 048

REACTIONS (4)
  - WHITE BLOOD CELL COUNT INCREASED [None]
  - FALL [None]
  - WHITE BLOOD CELL COUNT DECREASED [None]
  - PLATELET COUNT DECREASED [None]
